FAERS Safety Report 8252523-5 (Version None)
Quarter: 2012Q2

REPORT INFORMATION
  Report Type: 
  Country: None (occurrence: None)
  Receive Date: 20120402
  Receipt Date: 20111026
  Transmission Date: 20120825
  Serious: No
  Sender: FDA-Public Use
  Company Number: US-ABBOTT-11P-163-0870090-00

PATIENT
  Age: 43 Year
  Sex: Male
  Weight: 122.58 kg

DRUGS (2)
  1. AMLODIPINE [Concomitant]
     Indication: HYPERTENSION
  2. ANDROGEL [Suspect]
     Indication: BLOOD TESTOSTERONE DECREASED
     Route: 061
     Dates: end: 20111026

REACTIONS (10)
  - PRURITUS [None]
  - PARAESTHESIA [None]
  - HEADACHE [None]
  - WEIGHT LOSS POOR [None]
  - INCORRECT DRUG ADMINISTRATION DURATION [None]
  - APPLICATION SITE RASH [None]
  - MOOD ALTERED [None]
  - ANGER [None]
  - GYNAECOMASTIA [None]
  - DRUG INEFFECTIVE [None]
